FAERS Safety Report 5400492-5 (Version None)
Quarter: 2007Q3

REPORT INFORMATION
  Report Type: 
  Country: None (occurrence: None)
  Receive Date: 20070725
  Receipt Date: 20070710
  Transmission Date: 20080115
  Serious: Yes (Hospitalization)
  Sender: FDA-Public Use
  Company Number: GXKR2007GB05943

PATIENT
  Age: 58 Year
  Sex: Female

DRUGS (3)
  1. BUPROPION (NGX) (BUPROPION) UNKNOWN [Suspect]
     Dosage: 150 MG, QD
  2. HYPERICUM PERFORATUM (NGX) (HYPERICUM PERFORATUM) UNKNOWN [Suspect]
     Dosage: 300 MG, QD
  3. TRIDESTA (ESTRADIOL VALERATE, MEDROXYPROGESTERONE ACETATE) [Concomitant]

REACTIONS (5)
  - COMMUNICATION DISORDER [None]
  - DRUG INTERACTION [None]
  - DYSTONIA [None]
  - EYE ROLLING [None]
  - MUSCLE SPASMS [None]
